FAERS Safety Report 16009658 (Version 2)
Quarter: 2020Q1

REPORT INFORMATION
  Report Type: Spontaneous
  Country: US (occurrence: US)
  Receive Date: 20190225
  Receipt Date: 20200115
  Transmission Date: 20200409
  Serious: Yes (Other)
  Sender: FDA-Public Use
  Company Number: US-UCBSA-2019007832

PATIENT
  Sex: Female

DRUGS (1)
  1. CIMZIA [Suspect]
     Active Substance: CERTOLIZUMAB PEGOL
     Indication: ANKYLOSING SPONDYLITIS
     Dosage: UNK

REACTIONS (8)
  - Myalgia [Unknown]
  - Nausea [Unknown]
  - Injection site pain [Unknown]
  - Pain [Unknown]
  - Muscle spasms [Unknown]
  - Arthralgia [Unknown]
  - Muscular weakness [Unknown]
  - Injection site mass [Unknown]

NARRATIVE: CASE EVENT DATE: 20190213
